FAERS Safety Report 9473526 (Version 1)
Quarter: 2013Q3

REPORT INFORMATION
  Report Type: Report from Study
  Country: US (occurrence: US)
  Receive Date: 20130823
  Receipt Date: 20130823
  Transmission Date: 20140515
  Serious: Yes (Other)
  Sender: FDA-Public Use
  Company Number: US-ABBOTT-13P-163-1134528-00

PATIENT
  Age: 46 Year
  Sex: Male
  Weight: 87.17 kg

DRUGS (10)
  1. HUMIRA [Suspect]
     Indication: RHEUMATOID ARTHRITIS
     Dates: start: 201301, end: 201303
  2. HYDROCODONE [Concomitant]
     Indication: PRODUCT USED FOR UNKNOWN INDICATION
  3. CORTIZONE INJECTIONS [Concomitant]
     Indication: PAIN MANAGEMENT
     Route: 050
     Dates: start: 201211
  4. CORTIZONE INJECTIONS [Concomitant]
     Indication: MUSCULOSKELETAL PAIN
  5. CORTIZONE INJECTIONS [Concomitant]
     Indication: PAIN IN EXTREMITY
  6. METHOTREXATE [Concomitant]
     Indication: PRODUCT USED FOR UNKNOWN INDICATION
  7. FOLIC ACID [Concomitant]
     Indication: PRODUCT USED FOR UNKNOWN INDICATION
  8. PLAQUENIL [Concomitant]
     Indication: PRODUCT USED FOR UNKNOWN INDICATION
  9. PREDNISONE [Concomitant]
     Indication: PRODUCT USED FOR UNKNOWN INDICATION
  10. SULPHASALAZINE [Concomitant]
     Indication: PRODUCT USED FOR UNKNOWN INDICATION

REACTIONS (3)
  - Tendon rupture [Unknown]
  - Rotator cuff syndrome [Unknown]
  - Mobility decreased [Unknown]
